FAERS Safety Report 7897658-1 (Version None)
Quarter: 2011Q4

REPORT INFORMATION
  Report Type: 
  Country: None (occurrence: None)
  Receive Date: 20111107
  Receipt Date: 20100727
  Transmission Date: 20120403
  Serious: No
  Sender: FDA-Public Use
  Company Number: US-BAYER-201031653NA

PATIENT
  Sex: Female

DRUGS (1)
  1. CLIMARA [Suspect]

REACTIONS (1)
  - APPLICATION SITE RASH [None]
